FAERS Safety Report 12966389 (Version 1)
Quarter: 2016Q4

REPORT INFORMATION
  Report Type: Spontaneous
  Country: US (occurrence: US)
  Receive Date: 20161121
  Receipt Date: 20161121
  Transmission Date: 20170207
  Serious: Yes (Other)
  Sender: FDA-Public Use
  Company Number: None

PATIENT
  Age: 64 Year
  Sex: Female

DRUGS (5)
  1. ORENCIA [Suspect]
     Active Substance: ABATACEPT
     Indication: PRODUCT USED FOR UNKNOWN INDICATION
     Dosage: ?          OTHER FREQUENCY:WEEKLY;?
     Route: 058
     Dates: start: 20150722
  2. FOLIC ACID. [Concomitant]
     Active Substance: FOLIC ACID
  3. VAGIFEM [Concomitant]
     Active Substance: ESTRADIOL
  4. RETINAL [Concomitant]
  5. ZYPAN [Concomitant]

REACTIONS (1)
  - Breast cancer [None]

NARRATIVE: CASE EVENT DATE: 20161120
